FAERS Safety Report 5306373-X (Version None)
Quarter: 2007Q2

REPORT INFORMATION
  Report Type: 
  Country: None (occurrence: None)
  Receive Date: 20070424
  Receipt Date: 20070405
  Transmission Date: 20071010
  Serious: Yes (Other)
  Sender: FDA-Public Use
  Company Number: US-ELI_LILLY_AND_COMPANY-US200704001649

PATIENT
  Age: 63 Year
  Sex: Female
  Weight: 81.632 kg

DRUGS (9)
  1. BYETTA [Suspect]
     Indication: DIABETES MELLITUS NON-INSULIN-DEPENDENT
     Dosage: 5 UG, 2/D
     Route: 058
     Dates: start: 20060801, end: 20060901
  2. BYETTA [Suspect]
     Dosage: 10 UG, 2/D
     Route: 058
     Dates: start: 20060901, end: 20070329
  3. GLUCOPHAGE [Concomitant]
     Indication: DIABETES MELLITUS NON-INSULIN-DEPENDENT
     Dosage: 1 UNK, DAILY (1/D)
     Route: 048
  4. DIOVAN [Concomitant]
     Indication: HYPERTENSION
     Dosage: 160 MG, DAILY (1/D)
     Route: 048
  5. LANTUS [Concomitant]
     Indication: DIABETES MELLITUS NON-INSULIN-DEPENDENT
     Dosage: 90 U, EACH MORNING
     Route: 058
     Dates: start: 20050101
  6. SIMVASTATIN [Concomitant]
     Dosage: 10 MG, DAILY (1/D)
     Route: 048
  7. LACRISERT [Concomitant]
     Indication: DRY EYE
     Dosage: 5 MG, 2/D
     Route: 047
  8. NEXIUM [Concomitant]
     Indication: HIATUS HERNIA
     Dosage: 40 MG, DAILY (1/D)
     Route: 048
     Dates: start: 20070329
  9. PROTONIX [Concomitant]
     Indication: HIATUS HERNIA
     Dosage: 1 UNK, DAILY (1/D)
     Route: 048
     Dates: end: 20070329

REACTIONS (10)
  - ABDOMINAL DISCOMFORT [None]
  - ABDOMINAL DISTENSION [None]
  - ABDOMINAL PAIN UPPER [None]
  - BACK PAIN [None]
  - CONVULSION [None]
  - GASTROOESOPHAGEAL REFLUX DISEASE [None]
  - LIPASE INCREASED [None]
  - NAUSEA [None]
  - PANCREATIC ENZYMES INCREASED [None]
  - WEIGHT DECREASED [None]
